FAERS Safety Report 11704680 (Version 1)
Quarter: 2015Q4

REPORT INFORMATION
  Report Type: Report from Study
  Country: MX (occurrence: MX)
  Receive Date: 20151106
  Receipt Date: 20151106
  Transmission Date: 20160304
  Serious: Yes (Death)
  Sender: FDA-Public Use
  Company Number: PHHY2014MX086702

PATIENT
  Sex: Male

DRUGS (3)
  1. STALEVO [Suspect]
     Active Substance: CARBIDOPA\ENTACAPONE\LEVODOPA
     Dosage: 1.5 DF, TID (ONE TABLET AND A HALF TABLET IN MORNING, NOON AND NIGHT)
     Route: 048
  2. STALEVO [Suspect]
     Active Substance: CARBIDOPA\ENTACAPONE\LEVODOPA
     Indication: PARKINSON^S DISEASE
     Dosage: 200/50/12.5 MG
     Route: 048
  3. STALEVO [Suspect]
     Active Substance: CARBIDOPA\ENTACAPONE\LEVODOPA
     Dosage: 5 DF, QD (50/12.5/200)
     Route: 065

REACTIONS (2)
  - Wrong technique in product usage process [Unknown]
  - Death [Fatal]
